FAERS Safety Report 25736507 (Version 2)
Quarter: 2025Q4

REPORT INFORMATION
  Report Type: Report from Study
  Country: US (occurrence: US)
  Receive Date: 20250828
  Receipt Date: 20251125
  Transmission Date: 20260118
  Serious: No
  Sender: DECIPHERA PHARMACEUTICALS
  Company Number: US-DECIPHERA PHARMACEUTICALS LLC-2025US000938

PATIENT
  Age: 85 Year
  Sex: Female
  Weight: 102.79 kg

DRUGS (1)
  1. QINLOCK [Suspect]
     Active Substance: RIPRETINIB
     Indication: Gastrointestinal stromal tumour
     Dosage: 100 MILLIGRAM, QD
     Dates: start: 20250621

REACTIONS (2)
  - Rash [Recovered/Resolved]
  - Incorrect dosage administered [Unknown]

NARRATIVE: CASE EVENT DATE: 20250101
